FAERS Safety Report 6130522-7 (Version None)
Quarter: 2009Q1

REPORT INFORMATION
  Report Type: 
  Country: None (occurrence: None)
  Receive Date: 20090323
  Receipt Date: 20081219
  Transmission Date: 20090719
  Serious: Yes (Other)
  Sender: FDA-Public Use
  Company Number: 2009EU000161

PATIENT
  Age: 2 Year
  Sex: Female

DRUGS (2)
  1. PROTOPIC [Suspect]
     Indication: SKIN DISORDER
     Dosage: %/D, TOPICAL
     Route: 061
  2. NEOCLARITYN (DESLORATADINE) [Concomitant]

REACTIONS (1)
  - HAIR GROWTH ABNORMAL [None]
